FAERS Safety Report 11449292 (Version 1)
Quarter: 2015Q3

REPORT INFORMATION
  Report Type: Report from Study
  Country: UG (occurrence: UG)
  Receive Date: 20150902
  Receipt Date: 20150902
  Transmission Date: 20151125
  Serious: Yes (Other)
  Sender: FDA-Public Use
  Company Number: UG-ABBVIE-15P-165-1454534-00

PATIENT
  Age: 33 Year
  Sex: Female

DRUGS (3)
  1. VIRAMUNE [Suspect]
     Active Substance: NEVIRAPINE
     Indication: ANTIRETROVIRAL THERAPY
     Dosage: PRIOR TO CONCEPTION; FIRST TRIMESTER EXPOSURE
     Route: 048
     Dates: start: 20070709
  2. VIREAD [Suspect]
     Active Substance: TENOFOVIR DISOPROXIL FUMARATE
     Indication: ANTIRETROVIRAL THERAPY
     Dosage: PRIOR TO CONCEPTION; FIRST TRIMESTER EXPOSURE
     Route: 048
     Dates: start: 20070709
  3. KALETRA [Suspect]
     Active Substance: LOPINAVIR\RITONAVIR
     Indication: ANTIRETROVIRAL THERAPY
     Dosage: PRIOR TO CONCEPTION; FIRST TRIMESTER EXPOSURE
     Route: 048
     Dates: start: 20080122

REACTIONS (2)
  - Stillbirth [Unknown]
  - Exposure during pregnancy [Unknown]

NARRATIVE: CASE EVENT DATE: 20090107
